FAERS Safety Report 6326314-6 (Version None)
Quarter: 2009Q3

REPORT INFORMATION
  Report Type: 
  Country: None (occurrence: None)
  Receive Date: 20090821
  Receipt Date: 20090807
  Transmission Date: 20100115
  Serious: Yes (Hospitalization)
  Sender: FDA-Public Use
  Company Number: PAR_03066_2009

PATIENT
  Sex: Male

DRUGS (9)
  1. IBUPROFEN [Suspect]
     Indication: OSTEOARTHRITIS
     Dosage: (DF)
     Dates: start: 20070922, end: 20081001
  2. IBUPROFEN [Suspect]
     Indication: RHEUMATOID ARTHRITIS
     Dosage: (DF)
  3. NAPROXEN [Suspect]
     Indication: OSTEOARTHRITIS
     Dosage: (DF)
     Dates: start: 20070922, end: 20081001
  4. NAPROXEN [Suspect]
     Indication: RHEUMATOID ARTHRITIS
     Dosage: (DF)
  5. DIAZEPAM [Suspect]
     Indication: DRUG USE FOR UNKNOWN INDICATION
     Dosage: (5 MG 1X/8 HOURS, AS NEEDED ORAL)
     Route: 048
     Dates: start: 20080923, end: 20081010
  6. CELECOXIB [Suspect]
     Indication: RHEUMATOID ARTHRITIS
     Dosage: (DF)
     Dates: start: 20070922, end: 20081001
  7. CELECOXIB [Suspect]
     Indication: OSTEOARTHRITIS
     Dosage: (DF)
  8. PERCOCET [Suspect]
     Indication: DRUG USE FOR UNKNOWN INDICATION
     Dosage: (1980 MG, [5 MG/325 MG FOUR TIMES AN HOUR AS NEEDED] ORAL)
     Route: 048
     Dates: start: 20080923, end: 20081010
  9. ESOMEPRAZOLE [Concomitant]

REACTIONS (6)
  - ANAEMIA POSTOPERATIVE [None]
  - ASTHENIA [None]
  - INTERVERTEBRAL DISC DEGENERATION [None]
  - MENTAL STATUS CHANGES [None]
  - POST PROCEDURAL COMPLICATION [None]
  - PRESYNCOPE [None]
